FAERS Safety Report 22212101 (Version 2)
Quarter: 2023Q2

REPORT INFORMATION
  Report Type: Spontaneous
  Country: US (occurrence: US)
  Receive Date: 20230414
  Receipt Date: 20230508
  Transmission Date: 20230722
  Serious: No
  Sender: FDA-Public Use
  Company Number: US-Calliditas-2023CAL00361

PATIENT
  Age: 49 Year
  Sex: Female

DRUGS (1)
  1. TARPEYO [Suspect]
     Active Substance: BUDESONIDE
     Indication: IgA nephropathy
     Dosage: 16 MG (4 MG CAPSULES) ONCE DAILY
     Route: 048
     Dates: start: 20230408

REACTIONS (6)
  - Blood pressure fluctuation [Unknown]
  - Hypertension [Unknown]
  - Heart rate decreased [Unknown]
  - Abdominal distension [Unknown]
  - Dyspepsia [Unknown]
  - Cough [Unknown]
